FAERS Safety Report 19609685 (Version 1)
Quarter: 2021Q3

REPORT INFORMATION
  Report Type: Spontaneous
  Country: US (occurrence: US)
  Receive Date: 20210723
  Receipt Date: 20210723
  Transmission Date: 20211014
  Serious: Yes (Hospitalization)
  Sender: FDA-Public Use
  Company Number: None

PATIENT
  Age: 47 Year
  Sex: Male
  Weight: 65.3 kg

DRUGS (2)
  1. AFATINIB [Suspect]
     Active Substance: AFATINIB
     Indication: LUNG CANCER METASTATIC
     Route: 048
     Dates: start: 20210514, end: 20210629
  2. NECITUMUMAB [Suspect]
     Active Substance: NECITUMUMAB
     Indication: LUNG CANCER METASTATIC
     Route: 042
     Dates: start: 20210514, end: 20210629

REACTIONS (6)
  - Therapy interrupted [None]
  - Heart rate irregular [None]
  - Cough [None]
  - Oedema peripheral [None]
  - Ventricular tachycardia [None]
  - Dyspnoea [None]

NARRATIVE: CASE EVENT DATE: 20210611
